FAERS Safety Report 8125227-7 (Version None)
Quarter: 2012Q1

REPORT INFORMATION
  Report Type: 
  Country: None (occurrence: None)
  Receive Date: 20120206
  Receipt Date: 20120125
  Transmission Date: 20120608
  Serious: Yes (Life-Threatening, Hospitalization, Other)
  Sender: FDA-Public Use
  Company Number: NSR_00482_2012

PATIENT
  Age: 60 Year
  Sex: Male

DRUGS (1)
  1. BACLOFEN [Suspect]
     Indication: QUADRIPLEGIA
     Dosage: (DF [ESTIMATED THAT THE PATIENT RECEIVED 55 MG] INTRATHECAL)
     Route: 037

REACTIONS (8)
  - MYOCLONUS [None]
  - BLOOD PRESSURE DECREASED [None]
  - COMA SCALE ABNORMAL [None]
  - RESPIRATORY DISTRESS [None]
  - OVERDOSE [None]
  - MUSCLE SPASTICITY [None]
  - COMA SCALE [None]
  - DRUG WITHDRAWAL SYNDROME [None]
